FAERS Safety Report 8025350-1 (Version None)
Quarter: 2012Q1

REPORT INFORMATION
  Report Type: 
  Country: None (occurrence: None)
  Receive Date: 20120105
  Receipt Date: 20120102
  Transmission Date: 20120608
  Serious: Yes (Hospitalization)
  Sender: FDA-Public Use
  Company Number: FR-ELI_LILLY_AND_COMPANY-FR201201000023

PATIENT
  Sex: Female

DRUGS (8)
  1. ASCOFER [Concomitant]
     Dosage: UNK, QD
  2. LEVOTHYROXINE SODIUM [Concomitant]
     Dosage: 100 UG, QD
  3. REQUIP [Concomitant]
  4. TOPIRAMATE [Concomitant]
     Dosage: 200 MG, QD
  5. CYMBALTA [Suspect]
     Indication: DEPRESSION
     Dosage: UNK
     Route: 048
     Dates: start: 20111003, end: 20111022
  6. TRAMADOL HCL [Concomitant]
     Dosage: 200 MG, QD
  7. SPECIAFOLDINE [Concomitant]
     Dosage: UNK, QD
  8. MIRTAZAPINE [Concomitant]
     Dosage: 15 MG, UNK

REACTIONS (4)
  - ANTINUCLEAR ANTIBODY POSITIVE [None]
  - PURPURA [None]
  - PSORIASIS [None]
  - PRURITUS [None]
